FAERS Safety Report 23405712 (Version 12)
Quarter: 2025Q3

REPORT INFORMATION
  Report Type: Spontaneous
  Country: US (occurrence: US)
  Receive Date: 20240116
  Receipt Date: 20250912
  Transmission Date: 20251020
  Serious: Yes (Other)
  Sender: SANOFI AVENTIS
  Company Number: US-SA-SAC20240110000725

PATIENT
  Age: 58 Year
  Sex: Male
  Weight: 83.9 kg

DRUGS (5)
  1. ELOCTATE [Suspect]
     Active Substance: EFMOROCTOCOG ALFA
     Indication: Factor VIII deficiency
     Dosage: 4000 U (3600-4400), BIW
     Route: 042
     Dates: start: 201207
  2. ELOCTATE [Suspect]
     Active Substance: EFMOROCTOCOG ALFA
     Indication: Factor VIII deficiency
     Dosage: 4000 U (3600-4400), BIW
     Route: 042
     Dates: start: 201207
  3. ELOCTATE [Suspect]
     Active Substance: EFMOROCTOCOG ALFA
     Route: 042
     Dates: start: 201207
  4. ELOCTATE [Suspect]
     Active Substance: EFMOROCTOCOG ALFA
     Route: 042
     Dates: start: 201207
  5. VITAMIN B12 [Concomitant]
     Active Substance: CYANOCOBALAMIN
     Dates: start: 2025

REACTIONS (16)
  - Haemarthrosis [Unknown]
  - Haemorrhage [Unknown]
  - Haemorrhage [Unknown]
  - Haemorrhage [Unknown]
  - Weight decreased [Unknown]
  - Pain in extremity [Unknown]
  - Bone pain [Unknown]
  - Haemorrhage [Recovered/Resolved]
  - Spontaneous haemorrhage [Unknown]
  - Weight increased [Unknown]
  - Mouth haemorrhage [Recovered/Resolved]
  - Memory impairment [Unknown]
  - Haemorrhage [Recovered/Resolved]
  - Spontaneous haemorrhage [Unknown]
  - Myalgia [Unknown]
  - Arthralgia [Unknown]

NARRATIVE: CASE EVENT DATE: 20231201
